FAERS Safety Report 9448676 (Version 1)
Quarter: 2013Q3

REPORT INFORMATION
  Report Type: Spontaneous
  Country: FR (occurrence: FR)
  Receive Date: 20130808
  Receipt Date: 20130808
  Transmission Date: 20140515
  Serious: Yes (Disabling, Other)
  Sender: FDA-Public Use
  Company Number: FR-ABBOTT-13P-056-1128154-00

PATIENT
  Age: 44 Year
  Sex: Female

DRUGS (4)
  1. NORVIR [Suspect]
     Indication: HIV INFECTION
     Dates: start: 2004, end: 20121130
  2. CERAZETTE [Suspect]
     Indication: PRODUCT USED FOR UNKNOWN INDICATION
     Dates: start: 201207, end: 20121112
  3. REYATAZ [Suspect]
     Indication: HIV INFECTION
     Dates: start: 2004, end: 20121130
  4. TRUVADA [Suspect]
     Indication: HIV INFECTION
     Dates: start: 2004, end: 20121130

REACTIONS (14)
  - Coronary artery stenosis [Unknown]
  - Coronary artery stenosis [Unknown]
  - Acute myocardial infarction [Recovered/Resolved with Sequelae]
  - Cardiac ventricular thrombosis [Unknown]
  - Right ventricular dysfunction [Unknown]
  - Ejection fraction decreased [Unknown]
  - Cardiac disorder [Unknown]
  - Coronary artery dissection [Unknown]
  - Pericardial haemorrhage [Unknown]
  - Necrosis [Unknown]
  - Myocardial ischaemia [Unknown]
  - Ventricular hypokinesia [Unknown]
  - Diastolic dysfunction [Unknown]
  - Cardiac ventricular disorder [Unknown]
